APPROVED DRUG PRODUCT: ESTRACE
Active Ingredient: ESTRADIOL
Strength: 0.01%
Dosage Form/Route: CREAM;VAGINAL
Application: A086069 | Product #001 | TE Code: AB
Applicant: ALLERGAN SALES LLC
Approved: Jan 31, 1984 | RLD: Yes | RS: Yes | Type: RX